FAERS Safety Report 8233281 (Version 4)
Quarter: 2013Q3

REPORT INFORMATION
  Report Type: Spontaneous
  Country: US (occurrence: None)
  Receive Date: 20111101
  Receipt Date: 20130701
  Transmission Date: 20140515
  Serious: Yes (Other)
  Sender: FDA-Public Use
  Company Number: AUR-APL-2011-05579

PATIENT
  Age: 73 Year
  Sex: Female
  Weight: 72.58 kg

DRUGS (15)
  1. ZOLPIDEM [Suspect]
     Indication: DYSKINESIA
     Dosage: 30 MG (10 MG, 3 IN 1 D), ORAL
     Route: 048
     Dates: start: 201107
  2. ZOLPIDEM [Suspect]
     Indication: DYSTONIA
     Dosage: 30 MG (10 MG, 3 IN 1 D), ORAL
     Route: 048
     Dates: start: 201107
  3. LEVOTHYROXINE SODIUM [Concomitant]
  4. ASPIRIN (ACETYLSALICYLIC ACID) [Concomitant]
  5. OMEPRAZOLE [Concomitant]
  6. XENAZINE [Concomitant]
  7. HYDROCHLOROTHIAZIDE [Concomitant]
  8. AMLODIPINE [Concomitant]
  9. LOVASTATIN [Concomitant]
  10. LEXAPRO [Concomitant]
  11. ADVAIR DISKUS [Concomitant]
  12. PROAIR (FLUTICASONE PROPIONATE) [Concomitant]
  13. FLUTICASONE PROPIONATE [Concomitant]
  14. LORATIDINE [Concomitant]
  15. TRAMADOL HYDROCHLORIDE [Concomitant]

REACTIONS (4)
  - Product substitution issue [None]
  - Drug effect decreased [None]
  - Product quality issue [None]
  - Product substitution issue [None]
